FAERS Safety Report 6762085-7 (Version None)
Quarter: 2010Q2

REPORT INFORMATION
  Report Type: 
  Country: None (occurrence: None)
  Receive Date: 20100609
  Receipt Date: 20100603
  Transmission Date: 20101027
  Serious: Yes (Hospitalization)
  Sender: FDA-Public Use
  Company Number: MX-BAYER-201015339LA

PATIENT
  Age: 29 Year
  Sex: Female
  Weight: 85 kg

DRUGS (3)
  1. YASMIN [Suspect]
     Indication: ORAL CONTRACEPTION
     Route: 048
     Dates: start: 20100508, end: 20100521
  2. CARBAMAZEPINE [Concomitant]
     Indication: CYSTITIS INTERSTITIAL
  3. OBRAL [Concomitant]
     Indication: CYSTITIS INTERSTITIAL

REACTIONS (5)
  - CYSTITIS INTERSTITIAL [None]
  - PELVIC PAIN [None]
  - POLLAKIURIA [None]
  - PYELONEPHRITIS [None]
  - URINARY BLADDER HAEMORRHAGE [None]
